FAERS Safety Report 8779774 (Version 2)
Quarter: 2012Q4

REPORT INFORMATION
  Report Type: 
  Country: US (occurrence: US)
  Receive Date: 20120913
  Receipt Date: 20120913
  Transmission Date: 20130627
  Serious: No
  Sender: FDA-Public Use
  Company Number: US-ASTRAZENECA-2012SE47083

PATIENT
  Sex: Female

DRUGS (2)
  1. NEXIUM [Suspect]
     Indication: DYSPEPSIA
     Route: 048
  2. IBUPROFEN [Concomitant]
     Indication: ARTHRALGIA

REACTIONS (3)
  - Fatigue [Unknown]
  - Memory impairment [Unknown]
  - Photosensitivity reaction [Unknown]
